FAERS Safety Report 9379409 (Version 2)
Quarter: 2013Q3

REPORT INFORMATION
  Report Type: Spontaneous
  Country: US (occurrence: None)
  Receive Date: 20130626
  Receipt Date: 20130729
  Transmission Date: 20140515
  Serious: Yes (Death, Hospitalization)
  Sender: FDA-Public Use
  Company Number: UTC-034049

PATIENT
  Age: 46 Year
  Sex: Male
  Weight: 51.81 kg

DRUGS (3)
  1. TYVASO [Suspect]
     Indication: PULMONARY HYPERTENSION
     Dosage: (4 IN 1 D)
     Route: 055
     Dates: start: 20130328, end: 2013
  2. ADCIRCA (TADALAFIL)(UNKNOWN) [Concomitant]
  3. VENTAVIS [Suspect]
     Indication: PRODUCT USED FOR UNKNOWN INDICATION
     Route: 055

REACTIONS (2)
  - Death [None]
  - Drug intolerance [None]
